FAERS Safety Report 9291330 (Version 1)
Quarter: 2012Q4

REPORT INFORMATION
  Report Type: Spontaneous
  Country: CN (occurrence: None)
  Receive Date: 20121018
  Receipt Date: 20121018
  Transmission Date: 20130627
  Serious: Yes (Hospitalization)
  Sender: FDA-Public Use
  Company Number: CTI_01441_2012

PATIENT
  Age: 5 Year
  Sex: Female

DRUGS (3)
  1. CEFACLOR [Suspect]
     Indication: TONSILLITIS
     Route: 048
     Dates: start: 20120117, end: 20120121
  2. IBUPROFEN [Concomitant]
  3. VITAMIN C POWDER-NEEDLE [Concomitant]

REACTIONS (3)
  - Bronchopneumonia [None]
  - Hyperaemia [None]
  - Oropharyngeal pain [None]
